FAERS Safety Report 4535384-7 (Version None)
Quarter: 2004Q4

REPORT INFORMATION
  Report Type: 
  Country: None (occurrence: None)
  Receive Date: 20041214
  Receipt Date: 20040907
  Transmission Date: 20050328
  Serious: No
  Sender: FDA-Public Use
  Company Number: 2004234307US

PATIENT
  Age: 43 Year
  Sex: Female
  Weight: 63.5 kg

DRUGS (3)
  1. BEXTRA [Suspect]
     Indication: BACK PAIN
     Dosage: 20 MG, ORAL
     Route: 048
     Dates: start: 20040901, end: 20040301
  2. DICLOFENAC [Concomitant]
  3. DARVOCET [Concomitant]

REACTIONS (5)
  - DIZZINESS [None]
  - DYSPNOEA [None]
  - MUSCLE CONTRACTIONS INVOLUNTARY [None]
  - STOMACH DISCOMFORT [None]
  - SWELLING [None]
